FAERS Safety Report 8311916-8 (Version None)
Quarter: 2012Q2

REPORT INFORMATION
  Report Type: 
  Country: None (occurrence: None)
  Receive Date: 20120425
  Receipt Date: 20120417
  Transmission Date: 20120825
  Serious: Yes (Hospitalization)
  Sender: FDA-Public Use
  Company Number: BR-ASTRAZENECA-2011SE73473

PATIENT
  Age: 70 Year
  Sex: Male
  Weight: 79 kg

DRUGS (3)
  1. ATACAND [Suspect]
     Indication: HYPERTENSION
     Route: 048
     Dates: start: 20100101, end: 20111201
  2. LIPITOR [Concomitant]
     Route: 048
  3. ATACAND HCT [Suspect]
     Dosage: 8/12.5 MG
     Route: 048

REACTIONS (2)
  - MYOCARDIAL INFARCTION [None]
  - ARTERIAL OCCLUSIVE DISEASE [None]
